FAERS Safety Report 22336533 (Version 1)
Quarter: 2023Q2

REPORT INFORMATION
  Report Type: Spontaneous
  Country: US (occurrence: US)
  Receive Date: 20230518
  Receipt Date: 20230518
  Transmission Date: 20230721
  Serious: No
  Sender: FDA-Public Use
  Company Number: US-STERISCIENCE B.V.-2022-ST-000412

PATIENT
  Age: 32 Year
  Sex: Male

DRUGS (17)
  1. ONDANSETRON [Suspect]
     Active Substance: ONDANSETRON
     Indication: Cannabinoid hyperemesis syndrome
     Dosage: 4 MILLIGRAM
     Route: 065
  2. KETOROLAC [Suspect]
     Active Substance: KETOROLAC TROMETHAMINE
     Indication: Cannabinoid hyperemesis syndrome
     Dosage: 30 MILLIGRAM
     Route: 042
  3. PROMETHAZINE [Suspect]
     Active Substance: PROMETHAZINE HYDROCHLORIDE
     Indication: Cannabinoid hyperemesis syndrome
     Dosage: 25 MILLIGRAM
     Route: 065
  4. MORPHINE [Suspect]
     Active Substance: MORPHINE
     Indication: Cannabinoid hyperemesis syndrome
     Dosage: UNK
     Route: 042
  5. PANTOPRAZOLE [Suspect]
     Active Substance: PANTOPRAZOLE
     Indication: Cannabinoid hyperemesis syndrome
     Dosage: 40 MILLIGRAM
     Route: 048
  6. SUCRALFATE [Suspect]
     Active Substance: SUCRALFATE
     Indication: Cannabinoid hyperemesis syndrome
     Dosage: 1 GRAM
     Route: 048
  7. ALUMINUM HYDROXIDE\DIMETHICONE\MAGNESIUM HYDROXIDE [Suspect]
     Active Substance: ALUMINUM HYDROXIDE\DIMETHICONE\MAGNESIUM HYDROXIDE
     Indication: Cannabinoid hyperemesis syndrome
     Dosage: 200-200-20MG/5ML 30ML
     Route: 065
  8. LIDOCAINE [Suspect]
     Active Substance: LIDOCAINE
     Indication: Cannabinoid hyperemesis syndrome
     Dosage: 15 MILLILITER
     Route: 065
  9. DICYCLOMINE [Suspect]
     Active Substance: DICYCLOMINE HYDROCHLORIDE
     Indication: Cannabinoid hyperemesis syndrome
     Dosage: 10 MILLILITER
     Route: 065
  10. HALOPERIDOL [Suspect]
     Active Substance: HALOPERIDOL
     Indication: Cannabinoid hyperemesis syndrome
     Dosage: 5 MILLIGRAM
     Route: 042
  11. HYOSCYAMINE [Suspect]
     Active Substance: HYOSCYAMINE
     Indication: Cannabinoid hyperemesis syndrome
     Dosage: 0.125 MILLIGRAM
     Route: 048
  12. OMEPRAZOLE [Suspect]
     Active Substance: OMEPRAZOLE
     Indication: Cannabinoid hyperemesis syndrome
     Dosage: 40 MILLIGRAM
     Route: 065
  13. FAMOTIDINE [Suspect]
     Active Substance: FAMOTIDINE
     Indication: Cannabinoid hyperemesis syndrome
     Dosage: 40 MILLIGRAM
     Route: 065
  14. METOCLOPRAMIDE [Suspect]
     Active Substance: METOCLOPRAMIDE
     Indication: Cannabinoid hyperemesis syndrome
     Dosage: 10 MILLIGRAM
     Route: 048
  15. DIPHENHYDRAMINE [Suspect]
     Active Substance: DIPHENHYDRAMINE
     Indication: Cannabinoid hyperemesis syndrome
     Dosage: 50 MILLIGRAM
     Route: 042
  16. DICYCLOMINE HYDROCHLORIDE [Suspect]
     Active Substance: DICYCLOMINE HYDROCHLORIDE
     Indication: Cannabinoid hyperemesis syndrome
     Dosage: 20 MILLIGRAM
     Route: 048
  17. HALOPERIDOL DECANOATE [Concomitant]
     Active Substance: HALOPERIDOL DECANOATE
     Indication: Product used for unknown indication
     Dosage: UNK
     Route: 065

REACTIONS (1)
  - Drug ineffective for unapproved indication [Unknown]
